FAERS Safety Report 17094483 (Version 5)
Quarter: 2020Q2

REPORT INFORMATION
  Report Type: Report from Study
  Country: US (occurrence: US)
  Receive Date: 20191129
  Receipt Date: 20200619
  Transmission Date: 20200713
  Serious: Yes (Hospitalization, Other)
  Sender: FDA-Public Use
  Company Number: NVSC2019US053920

PATIENT
  Age: 62 Year
  Sex: Female

DRUGS (1)
  1. GILENYA [Suspect]
     Active Substance: FINGOLIMOD HYDROCHLORIDE
     Indication: MULTIPLE SCLEROSIS
     Dosage: 0.5 MG, QD
     Route: 048
     Dates: start: 20180822

REACTIONS (6)
  - Dysuria [Unknown]
  - Blood urine present [Unknown]
  - Infection [Unknown]
  - Fatigue [Recovering/Resolving]
  - Bronchitis [Recovering/Resolving]
  - Nephrolithiasis [Unknown]

NARRATIVE: CASE EVENT DATE: 20191028
